FAERS Safety Report 10473769 (Version 1)
Quarter: 2014Q3

REPORT INFORMATION
  Report Type: Spontaneous
  Country: JP (occurrence: JP)
  Receive Date: 20140924
  Receipt Date: 20140924
  Transmission Date: 20150326
  Serious: Yes (Hospitalization)
  Sender: FDA-Public Use
  Company Number: PHHY2014JP122875

PATIENT
  Age: 45 Year
  Sex: Female

DRUGS (12)
  1. CEFTRIAXONE. [Suspect]
     Active Substance: CEFTRIAXONE
  2. VANCOMYCIN [Suspect]
     Active Substance: VANCOMYCIN
  3. CEFEPIME [Suspect]
     Active Substance: CEFEPIME\CEFEPIME HYDROCHLORIDE
  4. PROPOFOL. [Suspect]
     Active Substance: PROPOFOL
     Indication: EPILEPSY
     Route: 042
  5. LEVETIRACETAM. [Suspect]
     Active Substance: LEVETIRACETAM
     Indication: EPILEPSY
  6. MINOCYCLINE [Suspect]
     Active Substance: MINOCYCLINE\MINOCYCLINE HYDROCHLORIDE
  7. THIOPENTAL [Suspect]
     Active Substance: THIOPENTAL
     Indication: EPILEPSY
     Route: 042
  8. PHENYTOIN. [Suspect]
     Active Substance: PHENYTOIN
     Indication: EPILEPSY
  9. SODIUM VALPROATE [Suspect]
     Active Substance: VALPROATE SODIUM
     Indication: EPILEPSY
  10. ACYCLOVIR. [Suspect]
     Active Substance: ACYCLOVIR
  11. MIDAZOLAM [Suspect]
     Active Substance: MIDAZOLAM\MIDAZOLAM HYDROCHLORIDE
     Indication: EPILEPSY
     Route: 042
  12. PHENOBARBITAL. [Suspect]
     Active Substance: PHENOBARBITAL
     Indication: EPILEPSY

REACTIONS (8)
  - Dermatitis exfoliative [Recovered/Resolved]
  - Drug eruption [Unknown]
  - Serum ferritin increased [Recovered/Resolved]
  - Hypertriglyceridaemia [Recovered/Resolved]
  - Multi-organ failure [Recovering/Resolving]
  - Pyrexia [Recovered/Resolved]
  - Histiocytosis haematophagic [Recovered/Resolved]
  - Interleukin-2 receptor increased [Recovered/Resolved]
